FAERS Safety Report 5324041-5 (Version None)
Quarter: 2007Q2

REPORT INFORMATION
  Report Type: 
  Country: None (occurrence: None)
  Receive Date: 20070514
  Receipt Date: 20070504
  Transmission Date: 20071010
  Serious: Yes (Hospitalization)
  Sender: FDA-Public Use
  Company Number: US-GENENTECH-232458

PATIENT
  Sex: Female
  Weight: 93.18 kg

DRUGS (14)
  1. EFALIZUMAB [Suspect]
     Indication: PSORIASIS
     Dosage: 125 MG, 1/WEEK
     Route: 058
     Dates: start: 20050120, end: 20060620
  2. EFALIZUMAB [Suspect]
     Dosage: 1.25 ML, 1/WEEK
     Dates: start: 20061205
  3. TOPICAL STEROIDS (UNKNOWN INGREDIENTS) [Concomitant]
     Indication: PSORIASIS
     Dosage: UNK, BID
     Dates: start: 20050317
  4. NORVASC [Concomitant]
     Indication: DRUG USE FOR UNKNOWN INDICATION
     Dosage: 5 MG, UNK
  5. DETROL LA [Concomitant]
     Indication: DRUG USE FOR UNKNOWN INDICATION
  6. LASIX [Concomitant]
     Indication: DRUG USE FOR UNKNOWN INDICATION
     Dosage: 40 MG, UNK
  7. ACCUPRIL [Concomitant]
     Indication: DRUG USE FOR UNKNOWN INDICATION
     Dosage: 40 MG, BID
  8. HYDROCHLOROTHIAZIDE [Concomitant]
     Indication: DRUG USE FOR UNKNOWN INDICATION
     Dosage: 25 MG, UNK
  9. ACTOS [Concomitant]
     Indication: DRUG USE FOR UNKNOWN INDICATION
     Dosage: 30 MG, UNK
  10. SINGULAIR [Concomitant]
     Indication: DRUG USE FOR UNKNOWN INDICATION
     Dosage: 10 MG, UNK
  11. ZOCOR [Concomitant]
     Indication: DRUG USE FOR UNKNOWN INDICATION
     Dosage: 20 MG, UNK
  12. TYLOX [Concomitant]
     Indication: DRUG USE FOR UNKNOWN INDICATION
  13. METFORMIN HCL [Concomitant]
     Indication: DRUG USE FOR UNKNOWN INDICATION
  14. IRON SULFATETHIAMIN COMPOUND TAB [Concomitant]
     Indication: DRUG USE FOR UNKNOWN INDICATION

REACTIONS (1)
  - CLOSTRIDIUM DIFFICILE COLITIS [None]
